FAERS Safety Report 5215468-0 (Version None)
Quarter: 2007Q1

REPORT INFORMATION
  Report Type: 
  Country: None (occurrence: None)
  Receive Date: 20070119
  Receipt Date: 20070119
  Transmission Date: 20070707
  Serious: No
  Sender: FDA-Public Use
  Company Number: None

PATIENT
  Sex: Male
  Weight: 81.25 kg

DRUGS (11)
  1. TAXOTERE [Suspect]
     Indication: SQUAMOUS CELL CARCINOMA
     Dosage: 75 MG/M2 IV EVERY 21 DAYS
     Route: 042
     Dates: start: 20070108
  2. CISPLATIN [Suspect]
     Indication: SQUAMOUS CELL CARCINOMA
     Dosage: 75 MG/M2 IV EVERY 21 DAYS
     Route: 042
     Dates: start: 20070108
  3. CETUXIMAB [Suspect]
     Indication: SQUAMOUS CELL CARCINOMA
     Dosage: 400 MG/M2 IV EVERY 7 DAYS
     Route: 042
     Dates: start: 20070108
  4. CETUXIMAB [Suspect]
     Indication: SQUAMOUS CELL CARCINOMA
     Dosage: 400 MG/M2 IV EVERY 7 DAYS
     Route: 042
     Dates: start: 20070116
  5. LISINOPRIL [Concomitant]
  6. CIPRO [Concomitant]
  7. ALPRAZOLAM [Concomitant]
  8. DECADRON [Concomitant]
  9. TYLENOL [Concomitant]
  10. EMEND [Concomitant]
  11. BENADRYL [Concomitant]

REACTIONS (3)
  - CHILLS [None]
  - NEUTROPENIA [None]
  - PYREXIA [None]
